FAERS Safety Report 6176152-2 (Version None)
Quarter: 2009Q2

REPORT INFORMATION
  Report Type: 
  Country: None (occurrence: None)
  Receive Date: 20090501
  Receipt Date: 20090424
  Transmission Date: 20091009
  Serious: Yes (Hospitalization)
  Sender: FDA-Public Use
  Company Number: US-ASTRAZENECA-2009UW10202

PATIENT
  Age: 61 Year
  Sex: Male
  Weight: 95.3 kg

DRUGS (4)
  1. CRESTOR [Suspect]
     Indication: BLOOD CHOLESTEROL INCREASED
     Route: 048
  2. TOPROL-XL [Concomitant]
     Route: 048
  3. NIASPAN [Concomitant]
  4. HUMALOG [Concomitant]

REACTIONS (1)
  - PNEUMONIA [None]
